FAERS Safety Report 23808409 (Version 1)
Quarter: 2024Q2

REPORT INFORMATION
  Report Type: Report from Study
  Country: US (occurrence: US)
  Receive Date: 20240502
  Receipt Date: 20240502
  Transmission Date: 20240716
  Serious: Yes (Other)
  Sender: FDA-Public Use
  Company Number: US-ABBVIE-5738892

PATIENT
  Age: 64 Year
  Sex: Female

DRUGS (2)
  1. RINVOQ [Suspect]
     Active Substance: UPADACITINIB
     Indication: Rheumatoid arthritis
     Dosage: FORM STRENGTH:15 MILLIGRAM
     Route: 048
     Dates: start: 202306, end: 202403
  2. OTEZLA [Concomitant]
     Active Substance: APREMILAST
     Indication: Product used for unknown indication

REACTIONS (2)
  - Haematemesis [Recovered/Resolved]
  - Gastrointestinal polyp [Unknown]

NARRATIVE: CASE EVENT DATE: 20240201
